FAERS Safety Report 4447836-9 (Version None)
Quarter: 2004Q3

REPORT INFORMATION
  Report Type: 
  Country: None (occurrence: None)
  Receive Date: 20040812
  Receipt Date: 20040526
  Transmission Date: 20050211
  Serious: No
  Sender: FDA-Public Use
  Company Number: USA040568693

PATIENT
  Sex: Male

DRUGS (2)
  1. CIALIS [Suspect]
     Indication: ERECTILE DYSFUNCTION
     Dosage: 20 MG
  2. ASPIRIN [Concomitant]

REACTIONS (2)
  - ERECTILE DYSFUNCTION [None]
  - THERAPEUTIC RESPONSE DECREASED [None]
